FAERS Safety Report 7359757-2 (Version None)
Quarter: 2011Q1

REPORT INFORMATION
  Report Type: 
  Country: None (occurrence: None)
  Receive Date: 20110307
  Receipt Date: 20090304
  Transmission Date: 20110831
  Serious: Yes (Other)
  Sender: FDA-Public Use
  Company Number: UK-2009-00062

PATIENT
  Age: 61 Year
  Sex: Male
  Weight: 83 kg

DRUGS (2)
  1. SIMVASTATIN [Suspect]
     Indication: BLOOD CHOLESTEROL INCREASED
     Dosage: 40 MG (40 MG) ORAL
     Route: 048
     Dates: start: 20070205, end: 20090101
  2. DOTHIEPIN HYDROCHLORIDE [Concomitant]

REACTIONS (3)
  - GINGIVAL RECESSION [None]
  - GINGIVITIS [None]
  - TOOTH LOSS [None]
